FAERS Safety Report 8695583 (Version 2)
Quarter: 2013Q4

REPORT INFORMATION
  Report Type: Spontaneous
  Country: JP (occurrence: JP)
  Receive Date: 20120731
  Receipt Date: 20131105
  Transmission Date: 20140711
  Serious: Yes (Other)
  Sender: FDA-Public Use
  Company Number: JP-009507513-1207JPN011004

PATIENT
  Sex: 0

DRUGS (1)
  1. FOSAMAC TABLETS 35MG [Suspect]
     Route: 048

REACTIONS (3)
  - Accidental overdose [Unknown]
  - Inappropriate schedule of drug administration [Unknown]
  - No adverse event [Unknown]
